FAERS Safety Report 16274613 (Version 1)
Quarter: 2019Q2

REPORT INFORMATION
  Report Type: Spontaneous
  Country: DE (occurrence: DE)
  Receive Date: 20190504
  Receipt Date: 20190504
  Transmission Date: 20190711
  Serious: Yes (Other)
  Sender: FDA-Public Use
  Company Number: PHHY2019DE099925

PATIENT
  Age: 56 Year
  Sex: Female

DRUGS (1)
  1. CLINDAHEXAL [Suspect]
     Active Substance: CLINDAMYCIN HYDROCHLORIDE
     Indication: ANIMAL BITE
     Dosage: 1 DF, QD
     Route: 065
     Dates: start: 20190415

REACTIONS (1)
  - Lyme disease [Unknown]
